FAERS Safety Report 8593844-6 (Version None)
Quarter: 2012Q3

REPORT INFORMATION
  Report Type: 
  Country: None (occurrence: None)
  Receive Date: 20120814
  Receipt Date: 20120809
  Transmission Date: 20120928
  Serious: Yes (Hospitalization, Other)
  Sender: FDA-Public Use
  Company Number: PHHY2012JP049682

PATIENT
  Sex: Female

DRUGS (3)
  1. AFINITOR [Suspect]
     Dosage: 5 MG, DAILY
     Route: 048
     Dates: start: 20110421, end: 20120411
  2. SUNITINIB MALATE [Suspect]
     Dosage: 37.5 MG, DAILY
     Route: 048
     Dates: start: 20100210, end: 20110322
  3. INTERFERON ALFA [Concomitant]
     Dosage: 3000000 IU, UNK
     Dates: start: 20091203, end: 20100115

REACTIONS (4)
  - PYREXIA [None]
  - LUNG DISORDER [None]
  - INTERSTITIAL LUNG DISEASE [None]
  - PRODUCTIVE COUGH [None]
